FAERS Safety Report 6682403-8 (Version None)
Quarter: 2010Q2

REPORT INFORMATION
  Report Type: 
  Country: None (occurrence: None)
  Receive Date: 20100415
  Receipt Date: 20100412
  Transmission Date: 20101027
  Serious: Yes (Death)
  Sender: FDA-Public Use
  Company Number: US-ASTRAZENECA-2009SE15013

PATIENT
  Age: 9577 Day
  Sex: Male

DRUGS (5)
  1. SEROQUEL [Suspect]
     Route: 048
  2. PRILOSEC [Concomitant]
  3. DEPAKENE [Concomitant]
  4. RESTORIL [Concomitant]
  5. LIBRIUM [Concomitant]

REACTIONS (4)
  - ARTERIOSCLEROSIS [None]
  - CORONARY ARTERY INSUFFICIENCY [None]
  - DIABETES MELLITUS [None]
  - HYPERTENSION [None]
